FAERS Safety Report 14196613 (Version 1)
Quarter: 2017Q4

REPORT INFORMATION
  Report Type: Spontaneous
  Country: US (occurrence: US)
  Receive Date: 20171116
  Receipt Date: 20171116
  Transmission Date: 20180321
  Serious: Yes (Hospitalization)
  Sender: FDA-Public Use
  Company Number: US-BAUSCH-BL-2017-029696

PATIENT
  Age: 87 Year
  Sex: Male

DRUGS (1)
  1. PROVENGE [Suspect]
     Active Substance: SIPULEUCEL-T
     Indication: PROSTATE CANCER
     Route: 042
     Dates: start: 20171013, end: 20171013

REACTIONS (8)
  - Mononuclear cell count abnormal [Unknown]
  - Infection [Unknown]
  - Hospitalisation [Not Recovered/Not Resolved]
  - Feeling cold [Unknown]
  - Hypertension [Unknown]
  - Anaemia [Unknown]
  - Hypotension [Unknown]
  - Blood culture positive [Unknown]

NARRATIVE: CASE EVENT DATE: 2017
